FAERS Safety Report 7666867-9 (Version None)
Quarter: 2011Q3

REPORT INFORMATION
  Report Type: 
  Country: None (occurrence: None)
  Receive Date: 20110806
  Receipt Date: 20110719
  Transmission Date: 20111222
  Serious: No
  Sender: FDA-Public Use
  Company Number: US-ABBOTT-11P-163-0840046-00

PATIENT
  Sex: Male
  Weight: 107.6 kg

DRUGS (4)
  1. UNKNOWN MEDICATION [Concomitant]
     Indication: NEPHROLITHIASIS
  2. UNKNOWN MEDICATION [Concomitant]
     Indication: HYPERTENSION
  3. ASPIRIN [Concomitant]
     Indication: PRODUCT USED FOR UNKNOWN INDICATION
  4. NIASPAN [Suspect]
     Indication: PRODUCT USED FOR UNKNOWN INDICATION
     Dates: start: 20110718

REACTIONS (1)
  - FATIGUE [None]
